FAERS Safety Report 13637276 (Version 1)
Quarter: 2017Q2

REPORT INFORMATION
  Report Type: Spontaneous
  Country: US (occurrence: US)
  Receive Date: 20170609
  Receipt Date: 20170609
  Transmission Date: 20170830
  Serious: Yes (Other)
  Sender: FDA-Public Use
  Company Number: US-ARALEZ PHARMACEUTICALS R+D INC.-ARA-TP-US-2017-601

PATIENT
  Age: 50 Year
  Sex: Female
  Weight: 76.73 kg

DRUGS (6)
  1. METOPROLOL SUCCINATE. [Suspect]
     Active Substance: METOPROLOL SUCCINATE
     Route: 048
  2. METOPROLOL SUCCINATE. [Suspect]
     Active Substance: METOPROLOL SUCCINATE
     Indication: STENT PLACEMENT
     Route: 048
     Dates: start: 201701
  3. ATORVASTATIN [Concomitant]
     Active Substance: ATORVASTATIN
     Indication: BLOOD CHOLESTEROL INCREASED
  4. BRILINTA [Suspect]
     Active Substance: TICAGRELOR
     Indication: STENT PLACEMENT
     Route: 048
     Dates: start: 201701
  5. ATORVASTATIN [Concomitant]
     Active Substance: ATORVASTATIN
     Indication: STENT PLACEMENT
     Route: 048
     Dates: start: 201701
  6. BABY ASPIRIN [Concomitant]
     Active Substance: ASPIRIN
     Route: 048
     Dates: start: 201701

REACTIONS (10)
  - Hypotension [Unknown]
  - Rash generalised [Unknown]
  - Erythema [Unknown]
  - Contusion [Unknown]
  - Gingivitis [Unknown]
  - Haematoma [Unknown]
  - Off label use [Unknown]
  - Syncope [Unknown]
  - Nervousness [Unknown]
  - Tooth infection [Unknown]

NARRATIVE: CASE EVENT DATE: 201701
